FAERS Safety Report 4796211-6 (Version None)
Quarter: 2005Q4

REPORT INFORMATION
  Report Type: 
  Country: None (occurrence: None)
  Receive Date: 20051007
  Receipt Date: 20050926
  Transmission Date: 20060501
  Serious: Yes (Hospitalization, Other)
  Sender: FDA-Public Use
  Company Number: 2005091220

PATIENT
  Age: 44 Year
  Sex: Male
  Weight: 111.1313 kg

DRUGS (8)
  1. XANAX [Suspect]
     Indication: ANXIETY
     Dosage: 3 MG (1 MG, 3 IN 1 D), ORAL
     Route: 048
     Dates: start: 20050331
  2. XANAX [Suspect]
     Indication: PANIC ATTACK
     Dosage: 3 MG (1 MG, 3 IN 1 D), ORAL
     Route: 048
     Dates: start: 20050331
  3. ZOLOFT [Suspect]
     Indication: PANIC ATTACK
     Dates: start: 20050331
  4. PEGINTERFERON ALFA-2B (PEGINTERFERON ALFA-2B) [Suspect]
     Indication: HEPATITIS C
     Dosage: 150 MCG, 1 IN 1 WK, SUBCUTANEOUS
     Route: 058
     Dates: start: 20050304, end: 20050701
  5. REBETOL [Suspect]
     Indication: HEPATITIS C
     Dosage: 1200 MG (1 IN 1 D), ORAL
     Route: 048
     Dates: start: 20050304, end: 20050701
  6. EFFEXOR XR [Suspect]
     Indication: ANXIETY
     Dosage: 75 MG (1 IN 1 D), ORAL
     Route: 048
     Dates: start: 20050215, end: 20050331
  7. EFFEXOR XR [Suspect]
     Indication: COLD SWEAT
     Dosage: 75 MG (1 IN 1 D), ORAL
     Route: 048
     Dates: start: 20050215, end: 20050331
  8. KLONOPIN [Concomitant]

REACTIONS (27)
  - AGITATION [None]
  - ANXIETY [None]
  - BLOOD PRESSURE SYSTOLIC INCREASED [None]
  - BRAIN OEDEMA [None]
  - CLAVICLE FRACTURE [None]
  - COLD SWEAT [None]
  - CONCUSSION [None]
  - DISSOCIATIVE IDENTITY DISORDER [None]
  - DRUG HYPERSENSITIVITY [None]
  - DRY MOUTH [None]
  - DYSARTHRIA [None]
  - FEELING HOT AND COLD [None]
  - FEELING JITTERY [None]
  - HEART RATE INCREASED [None]
  - HYPERHIDROSIS [None]
  - LOSS OF CONSCIOUSNESS [None]
  - OVERDOSE [None]
  - PAIN [None]
  - PANIC ATTACK [None]
  - RED BLOOD CELL COUNT DECREASED [None]
  - RIB FRACTURE [None]
  - ROAD TRAFFIC ACCIDENT [None]
  - TENDERNESS [None]
  - UPPER RESPIRATORY TRACT INFECTION [None]
  - URINARY INCONTINENCE [None]
  - WEIGHT DECREASED [None]
  - WHITE BLOOD CELL COUNT DECREASED [None]
